FAERS Safety Report 7554737-6 (Version None)
Quarter: 2011Q2

REPORT INFORMATION
  Report Type: 
  Country: None (occurrence: None)
  Receive Date: 20110617
  Receipt Date: 20110608
  Transmission Date: 20111010
  Serious: Yes (Other)
  Sender: FDA-Public Use
  Company Number: PHHY2011HR50366

PATIENT
  Age: 51 Year
  Sex: Female

DRUGS (6)
  1. SULPIRIDE [Suspect]
     Indication: DEPRESSION
     Dosage: 100 MG/DAY
  2. ZIPRASIDONE HYDROCHLORIDE [Suspect]
     Dosage: 40 MG/DAY
  3. FLUVOXAMINE MALEATE [Suspect]
     Indication: DEPRESSION
     Dosage: 100 MG/DAY
  4. OLANZAPINE [Suspect]
     Dosage: 5 MG, UNK
  5. ZOLPIDEM [Suspect]
     Indication: DEPRESSION
     Dosage: 10 MG, UNK
  6. ALPRAZOLAM [Suspect]
     Indication: DEPRESSION
     Dosage: 1.5 MG/DAY

REACTIONS (8)
  - MENTAL DISORDER [None]
  - ABDOMINAL DISCOMFORT [None]
  - FEAR [None]
  - OEDEMA PERIPHERAL [None]
  - PRURITUS GENERALISED [None]
  - INCREASED APPETITE [None]
  - RESTLESSNESS [None]
  - WEIGHT INCREASED [None]
